FAERS Safety Report 12762675 (Version 1)
Quarter: 2016Q3

REPORT INFORMATION
  Report Type: Spontaneous
  Country: GB (occurrence: GB)
  Receive Date: 20160920
  Receipt Date: 20160920
  Transmission Date: 20161109
  Serious: Yes (Hospitalization)
  Sender: FDA-Public Use
  Company Number: GB-JNJFOC-20160912807

PATIENT
  Age: 64 Year
  Sex: Male

DRUGS (1)
  1. CANAGLIFLOZIN [Suspect]
     Active Substance: CANAGLIFLOZIN
     Indication: DIABETES MELLITUS
     Dosage: DOSE: 100 (UNITS UNSPECIFIED)
     Route: 065
     Dates: end: 20160616

REACTIONS (2)
  - Urosepsis [Recovered/Resolved]
  - Urinary retention [Recovered/Resolved]
